FAERS Safety Report 17839863 (Version 1)
Quarter: 2020Q2

REPORT INFORMATION
  Report Type: Spontaneous
  Country: ES (occurrence: ES)
  Receive Date: 20200529
  Receipt Date: 20200529
  Transmission Date: 20200714
  Serious: Yes (Life-Threatening, Hospitalization)
  Sender: FDA-Public Use
  Company Number: NVSC2020ES147069

PATIENT
  Age: 53 Year
  Sex: Female

DRUGS (6)
  1. QUETIAPINE. [Suspect]
     Active Substance: QUETIAPINE
     Indication: SUICIDE ATTEMPT
     Dosage: 150 MG
     Route: 048
     Dates: end: 20191010
  2. RIVOTRIL [Suspect]
     Active Substance: CLONAZEPAM
     Indication: SUICIDE ATTEMPT
     Dosage: 16 MG, TOTAL
     Route: 048
     Dates: start: 20191011, end: 20191011
  3. QUETIAPINE. [Interacting]
     Active Substance: QUETIAPINE
     Indication: BORDERLINE PERSONALITY DISORDER
     Dosage: 6 G, TOTAL
     Route: 048
     Dates: start: 20191011, end: 20191011
  4. PREGABALINA [Concomitant]
     Active Substance: PREGABALIN
     Indication: BORDERLINE PERSONALITY DISORDER
     Dosage: UNK
     Route: 048
  5. RIVOTRIL [Suspect]
     Active Substance: CLONAZEPAM
     Indication: BORDERLINE PERSONALITY DISORDER
     Dosage: 8 MG, QD
     Route: 048
     Dates: end: 20191010
  6. ESCITALOPRAM [Concomitant]
     Active Substance: ESCITALOPRAM OXALATE
     Indication: BORDERLINE PERSONALITY DISORDER
     Dosage: 20 MG, QD
     Route: 048

REACTIONS (3)
  - Intentional overdose [Recovered/Resolved]
  - Respiratory depression [Recovered/Resolved]
  - Coma [Recovered/Resolved]

NARRATIVE: CASE EVENT DATE: 20191011
